FAERS Safety Report 20771181 (Version 1)
Quarter: 2022Q2

REPORT INFORMATION
  Report Type: Spontaneous
  Country: US (occurrence: US)
  Receive Date: 20220429
  Receipt Date: 20220429
  Transmission Date: 20220720
  Serious: Yes (Other)
  Sender: FDA-Public Use
  Company Number: US-BRISTOL-MYERS SQUIBB COMPANY-2022-024075

PATIENT
  Age: 73 Year
  Sex: Male

DRUGS (1)
  1. REVLIMID [Suspect]
     Active Substance: LENALIDOMIDE
     Indication: Amyloidosis
     Dosage: PO (PER ORAL) QD X 21 DAYS THEN 7 DAYS OFF
     Route: 048
     Dates: start: 20190807

REACTIONS (2)
  - Leukopenia [Recovering/Resolving]
  - Intentional product use issue [Unknown]
